FAERS Safety Report 6555361-4 (Version None)
Quarter: 2010Q1

REPORT INFORMATION
  Report Type: 
  Country: None (occurrence: None)
  Receive Date: 20100128
  Receipt Date: 20090716
  Transmission Date: 20100710
  Serious: No
  Sender: FDA-Public Use
  Company Number: A0797340A

PATIENT
  Age: 56 Year
  Sex: Female

DRUGS (3)
  1. BUPROPION HYDROCHLORIDE [Suspect]
     Indication: DEPRESSION
     Dosage: 100MG TWICE PER DAY
     Route: 048
     Dates: start: 20090401
  2. ABILIFY [Concomitant]
  3. PAXIL [Concomitant]

REACTIONS (4)
  - FORMICATION [None]
  - PRURITUS [None]
  - RASH [None]
  - SKIN BURNING SENSATION [None]
